FAERS Safety Report 7617761-0 (Version None)
Quarter: 2011Q3

REPORT INFORMATION
  Report Type: 
  Country: None (occurrence: None)
  Receive Date: 20110718
  Receipt Date: 20110708
  Transmission Date: 20111222
  Serious: Yes (Hospitalization, Other)
  Sender: FDA-Public Use
  Company Number: US-JNJFOC-20110704390

PATIENT
  Sex: Female
  Weight: 135.17 kg

DRUGS (11)
  1. ADVAIR DISKUS 100/50 [Concomitant]
     Indication: ASTHMA
     Dosage: AS NECESSARY
     Route: 055
     Dates: start: 20010101
  2. BUSPAR [Concomitant]
     Route: 048
  3. CALCIUM CARBONATE [Concomitant]
     Indication: OSTEOARTHRITIS
     Route: 048
     Dates: start: 19810101
  4. DEPAKOTE [Concomitant]
     Indication: BIPOLAR DISORDER
     Route: 048
  5. ELMIRON [Suspect]
     Indication: CYSTITIS INTERSTITIAL
     Route: 048
     Dates: start: 20030101
  6. BACTRIM [Concomitant]
     Route: 048
  7. M.V.I. [Concomitant]
     Route: 048
  8. DEPO-PROVERA [Suspect]
     Indication: CONTRACEPTION
     Route: 030
     Dates: start: 20110501
  9. NEXIUM [Concomitant]
     Route: 048
     Dates: start: 20000101
  10. TRANZINE [Concomitant]
     Dosage: AS NEEDED
     Route: 048
  11. CYCLOBENAZPRINE [Concomitant]
     Indication: FIBROMYALGIA
     Route: 048
     Dates: start: 20010101

REACTIONS (7)
  - MOOD SWINGS [None]
  - BLADDER DISORDER [None]
  - DRUG DOSE OMISSION [None]
  - HIP ARTHROPLASTY [None]
  - POLLAKIURIA [None]
  - KNEE ARTHROPLASTY [None]
  - WEIGHT DECREASED [None]
